FAERS Safety Report 10960629 (Version 1)
Quarter: 2015Q1

REPORT INFORMATION
  Report Type: Spontaneous
  Country: BE (occurrence: BE)
  Receive Date: 20150327
  Receipt Date: 20150327
  Transmission Date: 20150721
  Serious: Yes (Death, Hospitalization)
  Sender: FDA-Public Use
  Company Number: BE-PFIZER INC-2014176243

PATIENT
  Age: 44 Year
  Sex: Male

DRUGS (12)
  1. SAQUINAVIR [Concomitant]
     Active Substance: SAQUINAVIR
     Indication: HIV TEST POSITIVE
  2. PYRAZINAMIDE. [Concomitant]
     Active Substance: PYRAZINAMIDE
     Indication: ACID FAST BACILLI INFECTION
  3. CLARITHROMYCIN. [Concomitant]
     Active Substance: CLARITHROMYCIN
     Indication: ACID FAST BACILLI INFECTION
  4. LAMIVUDINE. [Concomitant]
     Active Substance: LAMIVUDINE
     Indication: HIV TEST POSITIVE
  5. ABACAVIR [Concomitant]
     Active Substance: ABACAVIR
     Indication: HIV TEST POSITIVE
  6. METHYLPREDNISOLONE. [Suspect]
     Active Substance: METHYLPREDNISOLONE
     Dosage: 32 MG, DAILY (32 MG A DAY FOR A MONTH)
  7. RITONAVIR. [Concomitant]
     Active Substance: RITONAVIR
     Indication: HIV TEST POSITIVE
  8. ETHAMBUTOL [Concomitant]
     Active Substance: ETHAMBUTOL HYDROCHLORIDE
     Indication: ACID FAST BACILLI INFECTION
  9. RIFAMPICIN [Concomitant]
     Active Substance: RIFAMPIN
     Indication: ACID FAST BACILLI INFECTION
  10. METHYLPREDNISOLONE. [Suspect]
     Active Substance: METHYLPREDNISOLONE
     Indication: ACID FAST BACILLI INFECTION
     Dosage: 48 MG, DAILY (48 MG A DAY FOR A MONTH)
  11. ZIDOVUDINE. [Concomitant]
     Active Substance: ZIDOVUDINE
     Indication: HIV TEST POSITIVE
  12. ISONIAZIDE [Concomitant]
     Active Substance: ISONIAZID
     Indication: ACID FAST BACILLI INFECTION

REACTIONS (1)
  - Aspergillus infection [Fatal]
